FAERS Safety Report 23636722 (Version 1)
Quarter: 2024Q1

REPORT INFORMATION
  Report Type: Spontaneous
  Country: CN (occurrence: CN)
  Receive Date: 20240315
  Receipt Date: 20240315
  Transmission Date: 20240410
  Serious: Yes (Other)
  Sender: FDA-Public Use
  Company Number: CN-PFIZER INC-PV202400035086

PATIENT
  Age: 60 Year
  Sex: Male
  Weight: 62 kg

DRUGS (3)
  1. EPIRUBICIN HYDROCHLORIDE [Suspect]
     Active Substance: EPIRUBICIN HYDROCHLORIDE
     Indication: Therapeutic procedure
     Dosage: 30.000 MG, 1X/DAY
     Dates: start: 20240229, end: 20240229
  2. OXALIPLATIN [Suspect]
     Active Substance: OXALIPLATIN
     Indication: Therapeutic procedure
     Dosage: 150.000 MG, 1X/DAY
     Dates: start: 20240229, end: 20240229
  3. FLUOROURACIL [Suspect]
     Active Substance: FLUOROURACIL
     Indication: Therapeutic procedure
     Dosage: 0.750 G, 1X/DAY
     Dates: start: 20240229, end: 20240229

REACTIONS (1)
  - Liver injury [Recovering/Resolving]

NARRATIVE: CASE EVENT DATE: 20240302
